FAERS Safety Report 5567518-X (Version None)
Quarter: 2007Q4

REPORT INFORMATION
  Report Type: 
  Country: None (occurrence: None)
  Receive Date: 20071214
  Receipt Date: 20071206
  Transmission Date: 20080405
  Serious: Yes (Life-Threatening, Hospitalization, Other)
  Sender: FDA-Public Use
  Company Number: 430012N07JPN

PATIENT
  Age: 51 Year
  Sex: Male

DRUGS (17)
  1. NOVANTRONE [Suspect]
     Dosage: 7 MG/M2, 1 IN 1 DAYS, INTRAVENOUS
     Route: 042
  2. MYLOTARG [Suspect]
     Dosage: SEE IMAGE
     Route: 042
     Dates: start: 20070717, end: 20070717
  3. MYLOTARG [Suspect]
     Dosage: SEE IMAGE
     Route: 042
     Dates: start: 20070801, end: 20070801
  4. AMPHOTERICIN B [Suspect]
     Dosage: 200 MG/M2, 1 IN 1 DAYS, INTRAVENOUS
     Route: 042
  5. CYTARABINE [Suspect]
     Dosage: 200 MG/M2, 1 IN 1 DAYS, INTRAVENOUS
     Route: 042
  6. LEVOFLOXACIN [Concomitant]
  7. FLUCONAZOLE [Concomitant]
  8. CEFTRIAXONE SODIUM [Concomitant]
  9. RABEPRAZOLE SODIUM [Concomitant]
  10. URSODIOL [Concomitant]
  11. LACTOBACILLUS BIFIDUS, LYOPHILIZED [Concomitant]
  12. HYDROCORTISONE /00028601/ [Concomitant]
  13. LOXOPROFEN SODIUM [Concomitant]
  14. REBAMIPIDE [Concomitant]
  15. SUCRALFATE [Concomitant]
  16. ACETAMINOPHEN [Concomitant]
  17. DOMPERIDONE [Concomitant]

REACTIONS (12)
  - BLOOD ALKALINE PHOSPHATASE INCREASED [None]
  - BLOOD LACTATE DEHYDROGENASE INCREASED [None]
  - BLOOD PRESSURE INCREASED [None]
  - DISEASE PROGRESSION [None]
  - DISSEMINATED INTRAVASCULAR COAGULATION [None]
  - FEBRILE NEUTROPENIA [None]
  - HEPATIC ENZYME INCREASED [None]
  - HYPOKALAEMIA [None]
  - OEDEMA [None]
  - PERFORMANCE STATUS DECREASED [None]
  - PLEURISY [None]
  - STOMATITIS [None]
